FAERS Safety Report 5342976-4 (Version None)
Quarter: 2007Q2

REPORT INFORMATION
  Report Type: 
  Country: None (occurrence: None)
  Receive Date: 20070416
  Receipt Date: 20070201
  Transmission Date: 20071010
  Serious: No
  Sender: FDA-Public Use
  Company Number: 2007SP000370

PATIENT
  Age: 83 Year
  Sex: Male
  Weight: 63.5036 kg

DRUGS (4)
  1. LUNESTA [Suspect]
     Indication: INSOMNIA
     Dosage: 2 MG; HS; ORAL
     Route: 048
     Dates: start: 20070130
  2. TAMSULOSIN HCL [Concomitant]
  3. HYDROCHLORIDE [Concomitant]
  4. PREVACID [Concomitant]

REACTIONS (1)
  - CHEST DISCOMFORT [None]
